FAERS Safety Report 7510441-1 (Version None)
Quarter: 2011Q2

REPORT INFORMATION
  Report Type: 
  Country: None (occurrence: None)
  Receive Date: 20110527
  Receipt Date: 20110522
  Transmission Date: 20111010
  Serious: Yes (Death, Hospitalization, Other)
  Sender: FDA-Public Use
  Company Number: AT-ELI_LILLY_AND_COMPANY-AT201105006330

PATIENT
  Sex: Male

DRUGS (3)
  1. ALIMTA [Suspect]
     Dosage: UNK, UNKNOWN
     Route: 065
     Dates: start: 20110408
  2. HEPAVIT [Concomitant]
     Dosage: UNK, UNKNOWN
     Route: 065
  3. FOLSAN [Concomitant]
     Dosage: UNK, UNKNOWN
     Route: 065

REACTIONS (2)
  - PANCYTOPENIA [None]
  - COMPLETED SUICIDE [None]
